FAERS Safety Report 9099413 (Version 1)
Quarter: 2013Q1

REPORT INFORMATION
  Report Type: Spontaneous
  Country: DE (occurrence: DE)
  Receive Date: 20130213
  Receipt Date: 20130213
  Transmission Date: 20140127
  Serious: Yes (Hospitalization)
  Sender: FDA-Public Use
  Company Number: DE-B.I. PHARMACEUTICALS,INC./RIDGEFIELD-2013-DE-00342DE

PATIENT
  Sex: Male
  Weight: 88 kg

DRUGS (6)
  1. PRADAXA [Suspect]
     Dosage: 2 ANZ
     Route: 048
     Dates: start: 201109, end: 20121218
  2. ENALAPRIL [Concomitant]
     Indication: CARDIAC FAILURE
     Dosage: 2.5 MG
     Route: 048
  3. ENALAPRIL [Concomitant]
     Indication: HYPERTONIA
  4. TORASEMID [Concomitant]
     Indication: CARDIAC FAILURE
     Dosage: 15 MG
     Route: 048
  5. LEVODOPA [Concomitant]
     Dosage: 125 MG
     Route: 048
  6. KEPPRA [Concomitant]
     Indication: EPILEPSY
     Dosage: 500 MG
     Route: 048

REACTIONS (4)
  - International normalised ratio increased [Recovered/Resolved]
  - Activated partial thromboplastin time prolonged [Recovered/Resolved]
  - Prothrombin time prolonged [Recovered/Resolved]
  - Glomerular filtration rate increased [Recovered/Resolved]
